FAERS Safety Report 24791659 (Version 1)
Quarter: 2024Q4

REPORT INFORMATION
  Report Type: Spontaneous
  Country: GB (occurrence: GB)
  Receive Date: 20241231
  Receipt Date: 20241231
  Transmission Date: 20250115
  Serious: Yes (Other)
  Sender: CELLTRION
  Company Number: GB-BAXTER-2024BAX029721

PATIENT

DRUGS (6)
  1. INFLIXIMAB [Suspect]
     Active Substance: INFLIXIMAB
     Indication: Psoriasis
     Dosage: [570 MG OF REMSIMA DILUTED WITH 250 ML OF SODIUM CHLORIDE 0.9% AND 57 ML WATER FOR INJECTIONS PH EUR
     Route: 042
  2. INFLIXIMAB [Suspect]
     Active Substance: INFLIXIMAB
     Dosage: UNK
  3. SODIUM CHLORIDE [Suspect]
     Active Substance: SODIUM CHLORIDE
     Indication: Medication dilution
     Dosage: 250 ML USED TO DILUTE 570 MG OF REMSIMA]; (ADDITIONAL INFORMATION ON DRUG: DOSAGE1: EXPDT=31-AUG-202
     Route: 042
  4. SODIUM CHLORIDE [Suspect]
     Active Substance: SODIUM CHLORIDE
     Dosage: UNK
  5. WATER [Suspect]
     Active Substance: WATER
     Indication: Medication dilution
     Dosage: [57 ML OF WATER FOR INJECTIONS PH EUR USED TO DILUTE 570 MG OF REMSIMA]; (ADDITIONAL INFORMATION ON
     Route: 042
  6. WATER [Suspect]
     Active Substance: WATER
     Dosage: UNK

REACTIONS (2)
  - Lower respiratory tract infection [Recovered/Resolved]
  - Influenza [Recovered/Resolved]

NARRATIVE: CASE EVENT DATE: 20241120
